FAERS Safety Report 4519243-1 (Version None)
Quarter: 2004Q4

REPORT INFORMATION
  Report Type: 
  Country: None (occurrence: None)
  Receive Date: 20041201
  Receipt Date: 20041115
  Transmission Date: 20050328
  Serious: Yes (Other)
  Sender: FDA-Public Use
  Company Number: 8006421

PATIENT
  Age: 28 Year
  Sex: Female

DRUGS (5)
  1. KEPPRA [Suspect]
     Indication: EPILEPSY
     Dosage: 2000MG/D
     Dates: start: 20040330, end: 20040618
  2. KEPPRA [Suspect]
     Indication: EPILEPSY
     Dosage: 3000MG/D
     Dates: start: 20040619
  3. LAMOTRIGINE [Concomitant]
  4. GABAPENTIN [Concomitant]
  5. CLONAZEPAM [Concomitant]

REACTIONS (10)
  - ALPHA 1 FOETOPROTEIN AMNIOTIC FLUID INCREASED [None]
  - ATAXIA [None]
  - CAESAREAN SECTION [None]
  - DRUG EXPOSURE DURING PREGNANCY [None]
  - FATIGUE [None]
  - GRAND MAL CONVULSION [None]
  - PLACENTAL INSUFFICIENCY [None]
  - PREMATURE BABY [None]
  - TOBACCO ABUSE [None]
  - ULTRASOUND SCAN ABNORMAL [None]
